FAERS Safety Report 8112247-1 (Version None)
Quarter: 2012Q1

REPORT INFORMATION
  Report Type: 
  Country: None (occurrence: None)
  Receive Date: 20120203
  Receipt Date: 20120120
  Transmission Date: 20120608
  Serious: Yes (Hospitalization)
  Sender: FDA-Public Use
  Company Number: GR-CELGENEUS-066-C5013-12011981

PATIENT
  Sex: Female
  Weight: 61 kg

DRUGS (14)
  1. THALIDOMIDE [Suspect]
     Indication: MULTIPLE MYELOMA
     Dosage: 100 MILLIGRAM
     Route: 048
     Dates: start: 20101206
  2. THALIDOMIDE [Suspect]
     Route: 048
     Dates: start: 20120105, end: 20120110
  3. LACTULOSE [Concomitant]
     Indication: CONSTIPATION
     Dosage: 30 MILLILITER
     Route: 048
     Dates: start: 20101222
  4. RABEPRAZOLE SODIUM [Concomitant]
     Indication: GASTRITIS PROPHYLAXIS
     Dosage: 20 MILLIGRAM
     Route: 048
     Dates: start: 20101126
  5. TIOTROPIUM [Concomitant]
     Indication: CHRONIC OBSTRUCTIVE PULMONARY DISEASE
     Dosage: 18 MILLIGRAM
     Route: 048
     Dates: start: 20060101
  6. ACETYLSALICYLIC ACID SRT [Concomitant]
     Dosage: 100 MILLIGRAM
     Route: 048
     Dates: start: 20101229
  7. SULFAMETHOXAZOLE [Concomitant]
     Indication: PROPHYLAXIS
     Route: 048
     Dates: start: 20101126
  8. VALACICLOVIR [Concomitant]
     Indication: PROPHYLAXIS
     Dosage: 500 MILLIGRAM
     Route: 048
     Dates: start: 20101126
  9. ALLOPURINOL [Concomitant]
     Dosage: 100 MILLIGRAM
     Route: 048
     Dates: start: 20101126
  10. MELPHALAN HYDROCHLORIDE [Suspect]
     Indication: MULTIPLE MYELOMA
     Dosage: 6 MILLIGRAM
     Route: 065
     Dates: start: 20101206
  11. PREDNISONE TAB [Suspect]
     Indication: MULTIPLE MYELOMA
     Dosage: 105 MILLIGRAM
     Route: 065
     Dates: start: 20101206
  12. FLUTICASONE PROPIONATE [Concomitant]
     Dosage: 125 MICROGRAM
     Route: 055
     Dates: start: 20060101
  13. MELPHALAN HYDROCHLORIDE [Suspect]
     Dosage: 6 MILLIGRAM
     Route: 065
     Dates: start: 20120105, end: 20120108
  14. PREDNISONE TAB [Suspect]
     Dosage: 120 MILLIGRAM
     Route: 065
     Dates: start: 20120105, end: 20120108

REACTIONS (1)
  - BREAST CANCER [None]
